FAERS Safety Report 25626811 (Version 1)
Quarter: 2025Q3

REPORT INFORMATION
  Report Type: Spontaneous
  Country: US (occurrence: None)
  Receive Date: 20250730
  Receipt Date: 20250730
  Transmission Date: 20251020
  Serious: Yes (Hospitalization)
  Sender: FDA-CTU
  Company Number: None

PATIENT
  Sex: Female

DRUGS (11)
  1. LENALIDOMIDE [Suspect]
     Active Substance: LENALIDOMIDE
     Indication: Plasma cell myeloma
     Route: 048
     Dates: start: 20240621
  2. ACETAMINOPHEN [Concomitant]
     Active Substance: ACETAMINOPHEN
  3. ALPRAZOLAM [Concomitant]
     Active Substance: ALPRAZOLAM
  4. ACETAMINOPHEN\CODEINE PHOSPHATE [Concomitant]
     Active Substance: ACETAMINOPHEN\CODEINE PHOSPHATE
  5. ASCORBIC ACID [Concomitant]
     Active Substance: ASCORBIC ACID
  6. DEXAMETHASONE [Concomitant]
     Active Substance: DEXAMETHASONE
  7. FUROSEMIDE [Concomitant]
     Active Substance: FUROSEMIDE
  8. LEVOTHYROXINE [Concomitant]
     Active Substance: LEVOTHYROXINE
  9. LIDOCAN [Concomitant]
     Active Substance: LIDOCAINE
  10. LINZESS [Concomitant]
     Active Substance: LINACLOTIDE
  11. LYRICA [Concomitant]
     Active Substance: PREGABALIN

REACTIONS (3)
  - Fall [None]
  - Peroneal nerve palsy [None]
  - Balance disorder [None]
